FAERS Safety Report 5463596-7 (Version None)
Quarter: 2007Q3

REPORT INFORMATION
  Report Type: 
  Country: None (occurrence: None)
  Receive Date: 20070920
  Receipt Date: 20070913
  Transmission Date: 20080115
  Serious: Yes (Hospitalization)
  Sender: FDA-Public Use
  Company Number: LU-ABBOTT-07P-098-0417055-00

PATIENT
  Age: 50 Year

DRUGS (1)
  1. HUMIRA [Suspect]
     Indication: CROHN'S DISEASE
     Dates: start: 20070801

REACTIONS (2)
  - BONE MARROW FAILURE [None]
  - PNEUMONIA [None]
